FAERS Safety Report 9382824 (Version 1)
Quarter: 2013Q3

REPORT INFORMATION
  Report Type: Spontaneous
  Country: US (occurrence: US)
  Receive Date: 20130703
  Receipt Date: 20130703
  Transmission Date: 20140515
  Serious: Yes (Death)
  Sender: FDA-Public Use
  Company Number: US-GLAXOSMITHKLINE-A1029306A

PATIENT
  Age: 75 Year
  Sex: Male

DRUGS (2)
  1. VOTRIENT [Suspect]
     Indication: RENAL CANCER
     Dosage: 200MG UNKNOWN
     Route: 065
     Dates: start: 20110923, end: 20130522
  2. AFINITOR [Suspect]
     Indication: RENAL CANCER
     Dosage: 5MG PER DAY
     Route: 048
     Dates: start: 20110923, end: 20130522

REACTIONS (1)
  - Death [Fatal]
